FAERS Safety Report 7256976-0 (Version None)
Quarter: 2011Q1

REPORT INFORMATION
  Report Type: 
  Country: None (occurrence: None)
  Receive Date: 20110129
  Receipt Date: 20100625
  Transmission Date: 20110831
  Serious: Yes (Other)
  Sender: FDA-Public Use
  Company Number: US-ABBOTT-10P-163-0652628-00

PATIENT
  Age: 80 Year
  Sex: Female

DRUGS (4)
  1. CENTRUM [Concomitant]
     Indication: PRODUCT USED FOR UNKNOWN INDICATION
     Route: 048
  2. METHOTREXATE [Concomitant]
     Indication: PRODUCT USED FOR UNKNOWN INDICATION
  3. HUMIRA [Suspect]
     Indication: RHEUMATOID ARTHRITIS
     Route: 058
     Dates: start: 20030601
  4. VITAMIN D [Concomitant]
     Indication: PRODUCT USED FOR UNKNOWN INDICATION

REACTIONS (8)
  - SKIN CANCER [None]
  - DIZZINESS [None]
  - MAJOR DEPRESSION [None]
  - VISION BLURRED [None]
  - FATIGUE [None]
  - NERVE COMPRESSION [None]
  - PAIN IN EXTREMITY [None]
  - PHOTOPHOBIA [None]
